FAERS Safety Report 20304419 (Version 1)
Quarter: 2022Q1

REPORT INFORMATION
  Report Type: Spontaneous
  Country: US (occurrence: US)
  Receive Date: 20220106
  Receipt Date: 20220106
  Transmission Date: 20220423
  Serious: Yes (Hospitalization)
  Sender: FDA-Public Use
  Company Number: US-NOVARTISPH-NVSC2022US001094

PATIENT
  Age: 50 Year
  Sex: Female

DRUGS (2)
  1. RANITIDINE [Suspect]
     Active Substance: RANITIDINE
     Indication: Dyspepsia
     Dosage: 300 MG, QD
     Route: 048
     Dates: end: 201911
  2. RANITIDINE [Suspect]
     Active Substance: RANITIDINE
     Indication: Dyspepsia
     Dosage: 300 MG, QD
     Route: 048
     Dates: end: 201911

REACTIONS (5)
  - Hepatic cancer stage II [Recovering/Resolving]
  - Gastric cancer stage I [Recovering/Resolving]
  - Small intestine carcinoma stage I [Recovering/Resolving]
  - Appendix cancer [Recovering/Resolving]
  - Gastrointestinal carcinoma [Recovering/Resolving]

NARRATIVE: CASE EVENT DATE: 20120101
